FAERS Safety Report 22036263 (Version 1)
Quarter: 2023Q1

REPORT INFORMATION
  Report Type: Spontaneous
  Country: NL (occurrence: NL)
  Receive Date: 20230225
  Receipt Date: 20230225
  Transmission Date: 20230418
  Serious: Yes (Other)
  Sender: FDA-Public Use
  Company Number: NL-LRB-00866714

PATIENT
  Sex: Female
  Weight: 53 kg

DRUGS (2)
  1. FLUOXETINE [Suspect]
     Active Substance: FLUOXETINE HYDROCHLORIDE
     Indication: Depression
     Dosage: 20 MILLIGRAM, ONCE A DAY(1X PER DAY 1 PIECE)
     Route: 065
     Dates: start: 20230204
  2. METHYLPHENIDATE HYDROCHLORIDE [Concomitant]
     Active Substance: METHYLPHENIDATE HYDROCHLORIDE
     Indication: Product used for unknown indication
     Dosage: 18 MILLIGRAM(MODIFIED-RELEASE TABLET, 18 MG (MILLIGRAMS))
     Route: 065

REACTIONS (2)
  - Syncope [Unknown]
  - Oesophageal pain [Unknown]
